FAERS Safety Report 10051731 (Version 2)
Quarter: 2014Q2

REPORT INFORMATION
  Report Type: Spontaneous
  Country: US (occurrence: US)
  Receive Date: 20140401
  Receipt Date: 20140401
  Transmission Date: 20141212
  Serious: Yes (Hospitalization, Other)
  Sender: FDA-Public Use
  Company Number: US-RB-064377-14

PATIENT
  Age: 74 Year
  Sex: Female

DRUGS (2)
  1. SUBOXONE TABLET [Suspect]
     Indication: PAIN
     Route: 060
     Dates: start: 2009, end: 2011
  2. SUBOXONE FILM [Suspect]
     Indication: PAIN
     Dosage: SUBOXONE FILM
     Route: 065
     Dates: start: 2011

REACTIONS (8)
  - Off label use [Not Recovered/Not Resolved]
  - Tarsal tunnel syndrome [Recovered/Resolved]
  - Pain in extremity [Recovering/Resolving]
  - Arthritis [Not Recovered/Not Resolved]
  - Back pain [Not Recovered/Not Resolved]
  - Heart rate increased [Recovered/Resolved]
  - Crying [Recovered/Resolved]
  - Anxiety [Recovered/Resolved]
